FAERS Safety Report 13150654 (Version 1)
Quarter: 2017Q1

REPORT INFORMATION
  Report Type: Not Available
  Country: FR (occurrence: FR)
  Receive Date: 20170125
  Receipt Date: 20170125
  Transmission Date: 20170428
  Serious: Yes (Other)
  Sender: FDA-Public Use
  Company Number: FR-MIDATECHPHARMA-2017-FR-000005

PATIENT
  Age: 59 Year
  Sex: Female

DRUGS (6)
  1. AMOXICILLINE [Suspect]
     Active Substance: AMOXICILLIN
     Dosage: 1500 MG DAILY
     Route: 065
     Dates: start: 20160915
  2. VFEND [Suspect]
     Active Substance: VORICONAZOLE
     Dosage: 400 MG DAILY
     Route: 065
     Dates: start: 20160915
  3. LORAMYC [Suspect]
     Active Substance: MICONAZOLE
     Dosage: 50 MG DAILY
     Route: 048
     Dates: start: 20160915
  4. BACTRIM [Suspect]
     Active Substance: SULFAMETHOXAZOLE\TRIMETHOPRIM
     Route: 065
  5. URSOLVAN [Suspect]
     Active Substance: URSODIOL
     Dosage: 300 MG DAILY
     Route: 065
     Dates: start: 20160915
  6. NEORAL [Suspect]
     Active Substance: CYCLOSPORINE
     Dosage: 100 MG DAILY
     Route: 065
     Dates: start: 20160915

REACTIONS (7)
  - Weight decreased [Unknown]
  - Aphthous ulcer [Not Recovered/Not Resolved]
  - Graft versus host disease [Unknown]
  - Rash [Unknown]
  - Cystitis [Unknown]
  - Tremor [Unknown]
  - Haematuria [Unknown]

NARRATIVE: CASE EVENT DATE: 20160915
